FAERS Safety Report 16662046 (Version 2)
Quarter: 2020Q1

REPORT INFORMATION
  Report Type: Report from Study
  Country: US (occurrence: US)
  Receive Date: 20190802
  Receipt Date: 20200129
  Transmission Date: 20200409
  Serious: No
  Sender: FDA-Public Use
  Company Number: US-EXELIXIS-CABO-19018158

PATIENT
  Sex: Female

DRUGS (15)
  1. COMETRIQ [Suspect]
     Active Substance: CABOZANTINIB S-MALATE
     Dosage: 120 MG, QD
     Route: 048
     Dates: start: 20180208
  2. FOSAMAX [Concomitant]
     Active Substance: ALENDRONATE SODIUM
  3. ASPIRIN. [Concomitant]
     Active Substance: ASPIRIN
  4. LEVOTHYROXINE. [Concomitant]
     Active Substance: LEVOTHYROXINE
  5. METOPROLOL SUCCINATE. [Concomitant]
     Active Substance: METOPROLOL SUCCINATE
  6. BUSPIRONE [Concomitant]
     Active Substance: BUSPIRONE HYDROCHLORIDE
  7. IBUPROFEN. [Concomitant]
     Active Substance: IBUPROFEN
  8. COMETRIQ [Suspect]
     Active Substance: CABOZANTINIB S-MALATE
     Indication: THYROID CANCER
     Dosage: 140 MG, QD
     Route: 048
     Dates: start: 20170119
  9. VITAMIN D [Concomitant]
     Active Substance: VITAMIN D NOS
  10. GARLIC. [Concomitant]
     Active Substance: GARLIC
  11. COENZYME Q10 [Concomitant]
     Active Substance: UBIDECARENONE
  12. LISINOPRIL. [Concomitant]
     Active Substance: LISINOPRIL
  13. CALCIUM [Concomitant]
     Active Substance: CALCIUM
  14. ROSUVASTATIN. [Concomitant]
     Active Substance: ROSUVASTATIN
  15. DRONABINOL. [Concomitant]
     Active Substance: DRONABINOL

REACTIONS (3)
  - Tooth fracture [Unknown]
  - Dental caries [Unknown]
  - Stomatitis [Unknown]
